FAERS Safety Report 12602952 (Version 3)
Quarter: 2016Q3

REPORT INFORMATION
  Report Type: Spontaneous
  Country: JP (occurrence: JP)
  Receive Date: 20160728
  Receipt Date: 20160824
  Transmission Date: 20161109
  Serious: Yes (Other)
  Sender: FDA-Public Use
  Company Number: JP-GE HEALTHCARE MEDICAL DIAGNOSTICS-OMPQ-PR-1607S-1285

PATIENT
  Age: 73 Year
  Sex: Female

DRUGS (3)
  1. OMNIPAQUE [Suspect]
     Active Substance: IOHEXOL
     Indication: DIAGNOSTIC PROCEDURE
  2. OMNIPAQUE [Suspect]
     Active Substance: IOHEXOL
     Indication: COLON CANCER
     Route: 065
     Dates: start: 20160719, end: 20160719
  3. ANTI-CANCER AGENT (UNSPECIFIED) [Concomitant]

REACTIONS (8)
  - Blood pressure decreased [Unknown]
  - Subarachnoid haemorrhage [Unknown]
  - Malaise [Unknown]
  - Chills [Unknown]
  - Loss of consciousness [Unknown]
  - Vomiting [Unknown]
  - Pruritus [Unknown]
  - Nausea [Unknown]

NARRATIVE: CASE EVENT DATE: 20160719
